FAERS Safety Report 25246492 (Version 1)
Quarter: 2025Q2

REPORT INFORMATION
  Report Type: Spontaneous
  Country: US (occurrence: US)
  Receive Date: 20250428
  Receipt Date: 20250428
  Transmission Date: 20250717
  Serious: No
  Sender: PFIZER
  Company Number: US-PFIZER INC-PV202300208183

PATIENT
  Age: 51 Year
  Sex: Female

DRUGS (8)
  1. XELJANZ [Suspect]
     Active Substance: TOFACITINIB CITRATE
     Indication: Rheumatoid arthritis
     Dosage: 5 MG, 2X/DAY
     Route: 048
     Dates: start: 202311
  2. XELJANZ [Suspect]
     Active Substance: TOFACITINIB CITRATE
     Indication: Osteoarthritis
     Dosage: 5 MG, 2X/DAY
     Route: 048
     Dates: start: 202311
  3. XELJANZ [Suspect]
     Active Substance: TOFACITINIB CITRATE
     Dosage: 5 MG, 2X/DAY
     Route: 048
     Dates: start: 202311
  4. GABAPENTIN [Concomitant]
     Active Substance: GABAPENTIN
  5. PREDNISONE [Concomitant]
     Active Substance: PREDNISONE
  6. RINVOQ [Concomitant]
     Active Substance: UPADACITINIB
  7. SULFASALAZINE [Concomitant]
     Active Substance: SULFASALAZINE
  8. TYLENOL ARTHRITIS PAIN [Concomitant]
     Active Substance: ACETAMINOPHEN

REACTIONS (1)
  - Gait inability [Not Recovered/Not Resolved]
